FAERS Safety Report 5145817-3 (Version None)
Quarter: 2006Q4

REPORT INFORMATION
  Report Type: 
  Country: None (occurrence: None)
  Receive Date: 20061108
  Receipt Date: 20061031
  Transmission Date: 20070319
  Serious: Yes (Hospitalization)
  Sender: FDA-Public Use
  Company Number: US-JNJFOC-20060903995

PATIENT
  Sex: Male

DRUGS (22)
  1. REMICADE [Suspect]
     Indication: PSORIATIC ARTHROPATHY
     Route: 042
  2. ZESTRIL [Suspect]
     Indication: HYPERTENSION
  3. IV CONTRAST [Suspect]
     Indication: SCAN WITH CONTRAST
  4. TORADOL [Suspect]
     Indication: DRUG USE FOR UNKNOWN INDICATION
  5. NICOTINE [Concomitant]
  6. LOVENOX [Concomitant]
  7. XOPENEX [Concomitant]
  8. ATROVENT [Concomitant]
  9. NEURONTIN [Concomitant]
  10. FOLIC ACID [Concomitant]
  11. TOPROL-XL [Concomitant]
  12. LIPITOR [Concomitant]
  13. ENTERRA [Concomitant]
  14. NPH INSULIN [Concomitant]
  15. LEVAQUIN [Concomitant]
  16. PROTONIX [Concomitant]
  17. PREDISONE [Concomitant]
  18. METFORMIN HCL [Concomitant]
  19. COLACE [Concomitant]
  20. NYSTATIN [Concomitant]
  21. ZOSYN [Concomitant]
  22. MORPHINE [Concomitant]
     Indication: PAIN

REACTIONS (6)
  - BRONCHITIS [None]
  - HYPOTENSION [None]
  - PLEURAL EFFUSION [None]
  - PNEUMONIA [None]
  - RENAL FAILURE ACUTE [None]
  - RENAL TUBULAR NECROSIS [None]
